FAERS Safety Report 7584320-8 (Version None)
Quarter: 2011Q2

REPORT INFORMATION
  Report Type: 
  Country: None (occurrence: None)
  Receive Date: 20110630
  Receipt Date: 20110620
  Transmission Date: 20111010
  Serious: Yes (Hospitalization)
  Sender: FDA-Public Use
  Company Number: BE-ABBOTT-11P-013-0733650-00

PATIENT
  Sex: Female

DRUGS (7)
  1. HUMIRA [Suspect]
     Indication: CROHN'S DISEASE
     Dosage: BASELINE
     Route: 058
     Dates: start: 20091001, end: 20091001
  2. PERDOLAN [Concomitant]
     Indication: HEADACHE
     Dates: start: 20091120
  3. QUESTRAN [Concomitant]
     Indication: BILE ACID MALABSORPTION
  4. HUMIRA [Suspect]
     Dosage: BASELINE
     Route: 058
  5. HUMIRA [Suspect]
     Route: 058
  6. D-CURE [Concomitant]
     Indication: VITAMIN D DEFICIENCY
     Dates: start: 20091201
  7. QUESTRAN [Concomitant]
     Indication: DIARRHOEA
     Dates: start: 20110126

REACTIONS (3)
  - CHILLS [None]
  - HYPERHIDROSIS [None]
  - PYREXIA [None]
